FAERS Safety Report 4884766-2 (Version None)
Quarter: 2005Q4

REPORT INFORMATION
  Report Type: 
  Country: None (occurrence: None)
  Receive Date: 20051201
  Receipt Date: 20050918
  Transmission Date: 20060501
  Serious: No
  Sender: FDA-Public Use
  Company Number: 2005PV002246

PATIENT
  Age: 66 Year
  Sex: Female
  Weight: 88.4514 kg

DRUGS (9)
  1. BYETTA [Suspect]
     Indication: DIABETES MELLITUS
     Dosage: SEE IMAGE
     Route: 058
     Dates: start: 20050712, end: 20050811
  2. BYETTA [Suspect]
     Indication: DIABETES MELLITUS
     Dosage: SEE IMAGE
     Route: 058
     Dates: start: 20050812
  3. LANTUS [Concomitant]
  4. AMARYL [Concomitant]
  5. AVANDIA [Concomitant]
  6. ASPIRIN [Concomitant]
  7. BLOOD PRESSURE [Concomitant]
  8. MEDICATIONS [Concomitant]
  9. CHOLESTEROL MEDICATION [Concomitant]

REACTIONS (1)
  - NODULE [None]
